FAERS Safety Report 18703842 (Version 1)
Quarter: 2021Q1

REPORT INFORMATION
  Report Type: Spontaneous
  Country: NL (occurrence: NL)
  Receive Date: 20210105
  Receipt Date: 20210105
  Transmission Date: 20210419
  Serious: Yes (Disabling)
  Sender: FDA-Public Use
  Company Number: NL-BAUSCH-BL-2020-039059

PATIENT
  Sex: Male
  Weight: 70 kg

DRUGS (4)
  1. PREDNISOLON [Concomitant]
     Active Substance: PREDNISOLONE
     Indication: PRODUCT USED FOR UNKNOWN INDICATION
  2. BROOMFENAC EYE DROPS 0.9MG / ML / YELLOX EYE DROPS 0.9MG/ML [Suspect]
     Active Substance: BROMFENAC SODIUM
     Indication: POSTOPERATIVE CARE
     Dosage: 5 ML BOTTLE
     Route: 065
     Dates: start: 20170710, end: 20170731
  3. VALACICLOVIR HYDROCHLORIDE [Concomitant]
     Active Substance: VALACYCLOVIR HYDROCHLORIDE
     Indication: PRODUCT USED FOR UNKNOWN INDICATION
  4. COTRIMOXAZOL [Concomitant]
     Active Substance: SULFAMETHOXAZOLE\TRIMETHOPRIM
     Indication: PRODUCT USED FOR UNKNOWN INDICATION
     Dosage: 120 TABLET  20/100MG

REACTIONS (2)
  - Ulcerative keratitis [Recovered/Resolved]
  - Visual acuity reduced [Recovered/Resolved]
